FAERS Safety Report 7740169-4 (Version None)
Quarter: 2011Q3

REPORT INFORMATION
  Report Type: 
  Country: None (occurrence: None)
  Receive Date: 20110909
  Receipt Date: 20110830
  Transmission Date: 20111222
  Serious: Yes (Hospitalization)
  Sender: FDA-Public Use
  Company Number: NL-ROCHE-800333

PATIENT
  Sex: Male

DRUGS (2)
  1. OXALIPLATIN [Suspect]
     Indication: COLON CANCER
     Route: 042
     Dates: start: 20110101, end: 20110101
  2. XELODA [Suspect]
     Indication: COLON CANCER
     Dosage: SECOND CYCLE: 28 JUNE 2011
     Route: 048
     Dates: start: 20110101, end: 20110101

REACTIONS (5)
  - DIARRHOEA [None]
  - BLOOD POTASSIUM DECREASED [None]
  - RENAL IMPAIRMENT [None]
  - PALMAR-PLANTAR ERYTHRODYSAESTHESIA SYNDROME [None]
  - BLOOD MAGNESIUM DECREASED [None]
